FAERS Safety Report 16469004 (Version 1)
Quarter: 2019Q2

REPORT INFORMATION
  Report Type: Spontaneous
  Country: US (occurrence: US)
  Receive Date: 20190624
  Receipt Date: 20190624
  Transmission Date: 20190711
  Serious: No
  Sender: FDA-Public Use
  Company Number: US-PFIZER INC-2019269313

PATIENT
  Age: 83 Year
  Sex: Female
  Weight: 49.43 kg

DRUGS (2)
  1. DULOXETINE HCL [Suspect]
     Active Substance: DULOXETINE HYDROCHLORIDE
     Dosage: 20 MG, 1X/DAY
     Dates: start: 201903, end: 20190408
  2. GABAPENTIN. [Suspect]
     Active Substance: GABAPENTIN
     Dosage: 100 MG, 4X/DAY
     Dates: start: 201903, end: 201904

REACTIONS (1)
  - Drug ineffective [Unknown]
